FAERS Safety Report 5296739-9 (Version None)
Quarter: 2007Q2

REPORT INFORMATION
  Report Type: 
  Country: None (occurrence: None)
  Receive Date: 20070413
  Receipt Date: 20070402
  Transmission Date: 20071010
  Serious: Yes (Other)
  Sender: FDA-Public Use
  Company Number: JP-PFIZER INC-2007027016

PATIENT
  Sex: Female
  Weight: 57.7 kg

DRUGS (5)
  1. DETRUSITOL LA [Suspect]
     Indication: NEUROGENIC BLADDER
     Route: 048
     Dates: start: 20070122, end: 20070316
  2. NORVASC [Concomitant]
  3. ALTAT [Concomitant]
     Route: 048
     Dates: start: 20041220
  4. ASPIRIN [Concomitant]
     Route: 048
     Dates: start: 20061006
  5. THYRADIN [Concomitant]
     Route: 048
     Dates: start: 20020311

REACTIONS (4)
  - ABDOMINAL PAIN UPPER [None]
  - ANOREXIA [None]
  - HEADACHE [None]
  - NAUSEA [None]
